FAERS Safety Report 24368523 (Version 1)
Quarter: 2024Q3

REPORT INFORMATION
  Report Type: Spontaneous
  Country: GB (occurrence: GB)
  Receive Date: 20240926
  Receipt Date: 20240926
  Transmission Date: 20241017
  Serious: Yes (Disabling)
  Sender: ESPERION THERAPEUTICS
  Company Number: None

PATIENT
  Age: 77 Year
  Sex: Male
  Weight: 88 kg

DRUGS (6)
  1. BEMPEDOIC ACID\EZETIMIBE [Suspect]
     Active Substance: BEMPEDOIC ACID\EZETIMIBE
     Indication: Dyslipidaemia
     Dosage: 1 DOSAGE FORM (180/10 MG)
     Route: 048
     Dates: start: 20240906, end: 20240910
  2. PROCHLORPERAZINE [Concomitant]
     Active Substance: PROCHLORPERAZINE
     Indication: Ill-defined disorder
     Dosage: 1 DOSAGE FORM, ONCE EVERY 8HR
     Route: 048
     Dates: start: 20240910
  3. PRAVASTATIN [Concomitant]
     Active Substance: PRAVASTATIN
     Indication: Ill-defined disorder
     Dosage: 2 DOSAGE FORM, QD (AT NIGHT)
     Route: 048
     Dates: start: 20230524, end: 20240806
  4. BISOPROLOL [Concomitant]
     Active Substance: BISOPROLOL\BISOPROLOL FUMARATE
     Indication: Ill-defined disorder
     Dosage: 1 DOSAGE FORM, QD
     Route: 048
     Dates: start: 20230524
  5. OMEPRAZOLE [Concomitant]
     Active Substance: OMEPRAZOLE
     Indication: Ill-defined disorder
     Dosage: 1 DOSAGE FORM, QD
     Route: 048
     Dates: start: 20230524
  6. RIVAROXABAN [Concomitant]
     Active Substance: RIVAROXABAN
     Indication: Ill-defined disorder
     Dosage: 1 DOSAGE FORM, QD (WITH FOOD)
     Route: 048
     Dates: start: 20240419

REACTIONS (2)
  - Balance disorder [Recovered/Resolved]
  - Dizziness [Recovered/Resolved]

NARRATIVE: CASE EVENT DATE: 20240906
